FAERS Safety Report 6198933-1 (Version None)
Quarter: 2009Q2

REPORT INFORMATION
  Report Type: 
  Country: None (occurrence: None)
  Receive Date: 20090522
  Receipt Date: 20090514
  Transmission Date: 20091009
  Serious: Yes (Hospitalization, Other)
  Sender: FDA-Public Use
  Company Number: ES-ELI_LILLY_AND_COMPANY-ES200905002824

PATIENT
  Age: 66 Year
  Sex: Male

DRUGS (8)
  1. HUMALOG [Suspect]
     Route: 058
     Dates: start: 20090312, end: 20090326
  2. OMEPRAZOL [Concomitant]
     Dosage: 20 MG, UNK
     Route: 048
     Dates: start: 20090318
  3. AUGMENTIN '125' [Concomitant]
     Dosage: 3 G, UNK
     Route: 042
     Dates: start: 20090318
  4. HIBOR [Concomitant]
     Dosage: 2500 IU, UNK
     Route: 058
     Dates: start: 20090312
  5. CREON [Concomitant]
     Dosage: 40000 IU, UNK
     Route: 048
     Dates: start: 20090312, end: 20090326
  6. LANTUS [Concomitant]
     Route: 058
     Dates: start: 19300912, end: 20090326
  7. NOLOTIL [Concomitant]
     Dosage: 6 G, UNK
     Route: 042
  8. ACETAMINOPHEN [Concomitant]
     Dosage: 3 G, UNK
     Route: 042
     Dates: start: 20090318

REACTIONS (2)
  - CEREBRAL INFARCTION [None]
  - HYPOGLYCAEMIC COMA [None]
